FAERS Safety Report 9386597 (Version 1)
Quarter: 2013Q3

REPORT INFORMATION
  Report Type: Spontaneous
  Country: US (occurrence: US)
  Receive Date: 20130708
  Receipt Date: 20130708
  Transmission Date: 20140515
  Serious: Yes (Hospitalization)
  Sender: FDA-Public Use
  Company Number: US-BRISTOL-MYERS SQUIBB COMPANY-19069327

PATIENT
  Age: 80 Year
  Sex: Male

DRUGS (9)
  1. ELIQUIS [Suspect]
     Indication: ATRIAL FIBRILLATION
  2. ASPIRIN [Concomitant]
  3. LOSARTAN [Concomitant]
  4. ROSUVASTATIN [Concomitant]
  5. FUROSEMIDE [Concomitant]
  6. GABAPENTIN [Concomitant]
  7. SPIRONOLACTONE [Concomitant]
  8. INSULIN [Concomitant]
  9. VITAMINS [Concomitant]

REACTIONS (3)
  - Respiratory failure [Unknown]
  - International normalised ratio increased [Recovering/Resolving]
  - Cardiac failure congestive [Unknown]
